FAERS Safety Report 22331841 (Version 1)
Quarter: 2023Q2

REPORT INFORMATION
  Report Type: Other
  Country: US (occurrence: US)
  Receive Date: 20230517
  Receipt Date: 20230517
  Transmission Date: 20230722
  Serious: No
  Sender: FDA-Public Use
  Company Number: US-TRAVERE-2023TVT00096

PATIENT
  Sex: Female

DRUGS (2)
  1. FILSPARI [Suspect]
     Active Substance: SPARSENTAN
     Indication: IgA nephropathy
     Route: 048
  2. FILSPARI [Suspect]
     Active Substance: SPARSENTAN
     Dosage: FILSPARI 200 MG 2TABS X 1DAY
     Route: 048

REACTIONS (5)
  - Faeces hard [Unknown]
  - Fear [Unknown]
  - Nasopharyngitis [Unknown]
  - Somnolence [Unknown]
  - Fatigue [Unknown]
